FAERS Safety Report 17950508 (Version 1)
Quarter: 2020Q2

REPORT INFORMATION
  Report Type: Spontaneous
  Country: US (occurrence: US)
  Receive Date: 20200626
  Receipt Date: 20200626
  Transmission Date: 20200714
  Serious: No
  Sender: FDA-Public Use
  Company Number: US-PFIZER INC-2020240418

PATIENT
  Age: 13 Year
  Sex: Female
  Weight: 40.82 kg

DRUGS (1)
  1. GENOTROPIN [Suspect]
     Active Substance: SOMATROPIN
     Indication: SHORT STATURE
     Dosage: UNK, 1X/DAY
     Dates: start: 202003

REACTIONS (3)
  - Intentional device misuse [Unknown]
  - Device issue [Unknown]
  - Product dose omission [Unknown]
